FAERS Safety Report 19051028 (Version 1)
Quarter: 2021Q1

REPORT INFORMATION
  Report Type: Spontaneous
  Country: US (occurrence: US)
  Receive Date: 20210324
  Receipt Date: 20210324
  Transmission Date: 20210420
  Serious: Yes (Disabling)
  Sender: FDA-Public Use
  Company Number: None

PATIENT
  Age: 70 Year
  Sex: Male
  Weight: 78.3 kg

DRUGS (4)
  1. BENICAR [Concomitant]
     Active Substance: OLMESARTAN MEDOXOMIL
  2. XARELTO [Concomitant]
     Active Substance: RIVAROXABAN
  3. AMLODIPINE BESYLATE 10MG [Suspect]
     Active Substance: AMLODIPINE BESYLATE
     Indication: HYPERTENSION
     Route: 048
     Dates: start: 20180301, end: 20210322
  4. SOTALOL. [Concomitant]
     Active Substance: SOTALOL

REACTIONS (4)
  - Supraventricular extrasystoles [None]
  - Nerve injury [None]
  - Neuropathy peripheral [None]
  - Pruritus [None]

NARRATIVE: CASE EVENT DATE: 20210201
